FAERS Safety Report 15944449 (Version 1)
Quarter: 2019Q1

REPORT INFORMATION
  Report Type: Spontaneous
  Country: GB (occurrence: GB)
  Receive Date: 20190211
  Receipt Date: 20190211
  Transmission Date: 20190417
  Serious: Yes (Hospitalization)
  Sender: FDA-Public Use
  Company Number: GB-TEVA-2019-GB-1008787

PATIENT
  Age: 66 Year
  Sex: Female

DRUGS (7)
  1. SPIRONOLACTONE. [Concomitant]
     Active Substance: SPIRONOLACTONE
  2. LACTULOSE. [Concomitant]
     Active Substance: LACTULOSE
  3. LEVOTHYROXINE. [Concomitant]
     Active Substance: LEVOTHYROXINE
  4. LANSOPRAZOLE. [Concomitant]
     Active Substance: LANSOPRAZOLE
  5. RANITIDINE. [Concomitant]
     Active Substance: RANITIDINE
  6. RIFAXIMIN. [Concomitant]
     Active Substance: RIFAXIMIN
  7. NAPROXEN. [Suspect]
     Active Substance: NAPROXEN
     Dosage: 500 MILLIGRAM DAILY;
     Route: 048
     Dates: start: 20190104

REACTIONS (4)
  - Upper gastrointestinal haemorrhage [Unknown]
  - Abdominal pain [Unknown]
  - Lip haemorrhage [Recovering/Resolving]
  - Acute kidney injury [Recovering/Resolving]

NARRATIVE: CASE EVENT DATE: 20190106
